FAERS Safety Report 5127611-2 (Version None)
Quarter: 2006Q4

REPORT INFORMATION
  Report Type: 
  Country: None (occurrence: None)
  Receive Date: 20061011
  Receipt Date: 20061002
  Transmission Date: 20070319
  Serious: Yes (Hospitalization)
  Sender: FDA-Public Use
  Company Number: 2006-02266

PATIENT
  Age: 66 Year
  Sex: Female
  Weight: 61 kg

DRUGS (8)
  1. VELCADE [Suspect]
     Indication: B-CELL LYMPHOMA
     Dosage: 2.70 MG, INTRAVENOUS
  2. OMEPRAZOLE [Concomitant]
  3. SPECIAFOLDINE (FOLIC ACID) [Concomitant]
  4. BACTRIM [Concomitant]
  5. CARDENSIEL (BISOPROLOL FUMARATE) [Concomitant]
  6. SOLUPRED (PREDNISOLONE SODIUM SULFOBENZOATE) [Concomitant]
  7. SERETIDE  (FLUTICASONE PROPIONATE, SALMETEROL) [Concomitant]
  8. FORADIL [Concomitant]

REACTIONS (10)
  - ANGINA PECTORIS [None]
  - ATRIAL FIBRILLATION [None]
  - BRONCHOPNEUMOPATHY [None]
  - CARDIAC FAILURE [None]
  - DYSPNOEA [None]
  - EJECTION FRACTION DECREASED [None]
  - MITRAL VALVE INCOMPETENCE [None]
  - PLEURAL EFFUSION [None]
  - TROPONIN INCREASED [None]
  - WEIGHT DECREASED [None]
